FAERS Safety Report 7218378-2 (Version None)
Quarter: 2011Q1

REPORT INFORMATION
  Report Type: 
  Country: None (occurrence: None)
  Receive Date: 20110110
  Receipt Date: 20110104
  Transmission Date: 20110831
  Serious: Yes (Other)
  Sender: FDA-Public Use
  Company Number: FR-PFIZER INC-2011002457

PATIENT
  Age: 58 Year
  Sex: Male

DRUGS (16)
  1. FUCIDINE [Suspect]
     Indication: INTERVERTEBRAL DISCITIS
     Dosage: UNK
     Route: 048
     Dates: start: 20101027, end: 20101105
  2. APROVEL [Concomitant]
  3. CELLCEPT [Concomitant]
  4. NEXIUM [Concomitant]
  5. NEORAL [Concomitant]
  6. ZYVOX [Suspect]
     Indication: INTERVERTEBRAL DISCITIS
     Dosage: UNK
     Route: 048
     Dates: start: 20101010, end: 20101027
  7. RIFAMPICIN [Suspect]
     Indication: INTERVERTEBRAL DISCITIS
     Dosage: UNK
     Route: 048
     Dates: start: 20101012, end: 20101105
  8. PRAZOSIN HCL [Concomitant]
  9. NOVORAPID [Concomitant]
  10. LEVOTHYROX [Concomitant]
  11. KARDEGIC [Concomitant]
  12. LANTUS [Concomitant]
  13. DURAGESIC-100 [Concomitant]
  14. KAYEXALATE [Concomitant]
  15. SOLUPRED [Concomitant]
  16. NEBIVOLOL [Concomitant]

REACTIONS (3)
  - GASTROINTESTINAL DISORDER [None]
  - CHOLESTASIS [None]
  - JAUNDICE [None]
